FAERS Safety Report 9337674 (Version 2)
Quarter: 2013Q3

REPORT INFORMATION
  Report Type: Spontaneous
  Country: JP (occurrence: JP)
  Receive Date: 20130607
  Receipt Date: 20130704
  Transmission Date: 20140515
  Serious: Yes (Other)
  Sender: FDA-Public Use
  Company Number: JP-ASTRAZENECA-2013SE38763

PATIENT
  Sex: Male

DRUGS (2)
  1. ZOLADEX [Suspect]
     Indication: PROSTATE CANCER
     Route: 058
  2. LEUPLIN [Suspect]
     Dosage: DOSE UNKNOWN
     Route: 065

REACTIONS (1)
  - Disseminated intravascular coagulation [Unknown]
